FAERS Safety Report 20933414 (Version 1)
Quarter: 2022Q2

REPORT INFORMATION
  Report Type: Spontaneous
  Country: DK (occurrence: DK)
  Receive Date: 20220608
  Receipt Date: 20220608
  Transmission Date: 20220720
  Serious: Yes (Death, Hospitalization, Other)
  Sender: FDA-Public Use
  Company Number: None

PATIENT
  Age: 11 Year
  Sex: Male

DRUGS (3)
  1. DOXORUBICIN [Suspect]
     Active Substance: DOXORUBICIN
     Indication: Ewing^s sarcoma
     Dosage: STRENGTH AND DOSAGE: UNKNOWN,ROUTE: INTRAVENOUS OTHERWISE NOT SPECIFIED
     Route: 050
     Dates: start: 20180416, end: 20181221
  2. CISPLATIN [Concomitant]
     Active Substance: CISPLATIN
     Indication: Ewing^s sarcoma
     Dosage: STRENGTH AND DOSAGE: UNKNOWN, ROUTE: INTRAVENOUS OTHERWISE NOT SPECIFIED
     Route: 050
     Dates: start: 20180416, end: 20181221
  3. METHOTREXATE [Concomitant]
     Active Substance: METHOTREXATE
     Indication: Ewing^s sarcoma
     Dosage: 4 SERIES OF METHOTREXATE
     Route: 065
     Dates: start: 201807

REACTIONS (6)
  - Left ventricular dilatation [Fatal]
  - Prerenal failure [Fatal]
  - Dyspnoea [Fatal]
  - Febrile neutropenia [Fatal]
  - Cardiac failure [Fatal]
  - Cardiomyopathy [Fatal]

NARRATIVE: CASE EVENT DATE: 20180101
